FAERS Safety Report 14136220 (Version 2)
Quarter: 2018Q1

REPORT INFORMATION
  Report Type: Report from Study
  Country: US (occurrence: US)
  Receive Date: 20171027
  Receipt Date: 20180123
  Transmission Date: 20180508
  Serious: No
  Sender: FDA-Public Use
  Company Number: US-AMGEN-USASL2017153615

PATIENT
  Age: 40 Year
  Sex: Male

DRUGS (1)
  1. REPATHA [Suspect]
     Active Substance: EVOLOCUMAB
     Indication: LOW DENSITY LIPOPROTEIN INCREASED
     Dosage: 425 MG, QMO
     Route: 065

REACTIONS (2)
  - Injection site erythema [Unknown]
  - Alopecia [Unknown]

NARRATIVE: CASE EVENT DATE: 2017
